FAERS Safety Report 21544346 (Version 1)
Quarter: 2022Q4

REPORT INFORMATION
  Report Type: Report from Study
  Country: US (occurrence: US)
  Receive Date: 20221102
  Receipt Date: 20221102
  Transmission Date: 20230113
  Serious: Yes (Other)
  Sender: FDA-Public Use
  Company Number: US-TAKEDA-2022TUS078330

PATIENT
  Sex: Male

DRUGS (4)
  1. MARIBAVIR [Suspect]
     Active Substance: MARIBAVIR
     Indication: Cytomegalovirus infection
     Dosage: UNK
     Route: 065
  2. ZOSYN [Concomitant]
     Active Substance: PIPERACILLIN SODIUM\TAZOBACTAM SODIUM
     Dosage: 3.375 GRAM, Q8HR
     Route: 042
     Dates: start: 20221021, end: 20221030
  3. CUBICIN [Concomitant]
     Active Substance: DAPTOMYCIN
     Dosage: 8 MILLIGRAM/KILOGRAM, BID
     Route: 042
     Dates: start: 20221021, end: 20221029
  4. NOXAFIL [Concomitant]
     Active Substance: POSACONAZOLE
     Dosage: 300 MILLIGRAM, QD
     Route: 042
     Dates: start: 20221013

REACTIONS (13)
  - Sepsis [Unknown]
  - Respiratory failure [Unknown]
  - Bacteraemia [Unknown]
  - Acute respiratory distress syndrome [Unknown]
  - Cytomegalovirus viraemia [Unknown]
  - Myelodysplastic syndrome [Unknown]
  - Neutropenia [Unknown]
  - Myeloproliferative neoplasm [Unknown]
  - Immunodeficiency [Unknown]
  - Pancytopenia [Unknown]
  - Toxic shock syndrome streptococcal [Unknown]
  - Stomatitis [Unknown]
  - Skin ulcer [Unknown]
